FAERS Safety Report 17038871 (Version 1)
Quarter: 2019Q4

REPORT INFORMATION
  Report Type: Report from Study
  Country: EG (occurrence: EG)
  Receive Date: 20191115
  Receipt Date: 20191115
  Transmission Date: 20200122
  Serious: Yes (Life-Threatening)
  Sender: FDA-Public Use
  Company Number: EG-B.I. PHARMACEUTICALS,INC./RIDGEFIELD-2019-BI-113857

PATIENT

DRUGS (2)
  1. CATAPRESAN [Suspect]
     Active Substance: CLONIDINE
     Indication: DELIRIUM
     Dosage: 0.1-0.2 UG/KG/H
     Route: 042
  2. CATAPRESAN [Suspect]
     Active Substance: CLONIDINE
     Indication: PROPHYLAXIS
     Dosage: 0.5 UG/KG
     Route: 042

REACTIONS (1)
  - Coma [Unknown]
